FAERS Safety Report 6407597-0 (Version None)
Quarter: 2009Q4

REPORT INFORMATION
  Report Type: 
  Country: None (occurrence: None)
  Receive Date: 20091020
  Receipt Date: 20091012
  Transmission Date: 20100525
  Serious: Yes (Other)
  Sender: FDA-Public Use
  Company Number: HQWYE382911NOV04

PATIENT
  Sex: Female

DRUGS (5)
  1. PREMPRO [Suspect]
  2. MEDROXYPROGESTERONE [Suspect]
  3. PROVERA [Suspect]
  4. ESTRADIOL [Suspect]
  5. ESTRACE [Suspect]

REACTIONS (1)
  - BREAST CANCER METASTATIC [None]
